FAERS Safety Report 5511596-0 (Version None)
Quarter: 2007Q4

REPORT INFORMATION
  Report Type: 
  Country: None (occurrence: None)
  Receive Date: 20071109
  Receipt Date: 20071029
  Transmission Date: 20080405
  Serious: No
  Sender: FDA-Public Use
  Company Number: GB-BAXTER-2007BH008512

PATIENT
  Sex: Female

DRUGS (2)
  1. DEXTROSE 5% [Suspect]
     Dosage: DOSE UNIT:UNKNOWN
     Route: 065
     Dates: start: 20071019, end: 20071019
  2. CARBOPLATIN [Suspect]
     Indication: CHEMOTHERAPY
     Dosage: DOSE UNIT:UNKNOWN
     Route: 065
     Dates: start: 20071019, end: 20071019

REACTIONS (1)
  - ACCIDENTAL EXPOSURE [None]
